FAERS Safety Report 11778898 (Version 6)
Quarter: 2025Q4

REPORT INFORMATION
  Report Type: Spontaneous
  Country: US (occurrence: US)
  Receive Date: 20151125
  Receipt Date: 20251024
  Transmission Date: 20260117
  Serious: Yes (Other)
  Sender: TEVA
  Company Number: US-ASTELLAS-2015US043707

PATIENT
  Age: 67 Year
  Sex: Male

DRUGS (9)
  1. MYCOPHENOLATE MOFETIL [Suspect]
     Active Substance: MYCOPHENOLATE MOFETIL
     Indication: Paraneoplastic pemphigus
     Dosage: FOR 1 MONTH
     Route: 065
  2. RITUXIMAB [Concomitant]
     Active Substance: RITUXIMAB
     Indication: Chronic lymphocytic leukaemia
     Route: 065
  3. RITUXIMAB [Concomitant]
     Active Substance: RITUXIMAB
     Indication: Chronic lymphocytic leukaemia
     Route: 065
  4. FLUCONAZOLE [Concomitant]
     Active Substance: FLUCONAZOLE
     Indication: Antifungal prophylaxis
     Route: 065
  5. ATOVAQUONE [Concomitant]
     Active Substance: ATOVAQUONE
     Indication: Antifungal prophylaxis
     Route: 065
  6. PENCICLOVIR [Concomitant]
     Active Substance: PENCICLOVIR
     Indication: Antifungal prophylaxis
     Route: 065
  7. BENDAMUSTINE [Suspect]
     Active Substance: BENDAMUSTINE
     Indication: Chronic lymphocytic leukaemia
     Dosage: TIME INTERVAL: TOTAL: COURSE OF ONLY ONE DAY OF BENDAMUSTINE INSTEAD OF TWO DAYS
     Route: 042
  8. DEXAMETHASONE [Suspect]
     Active Substance: DEXAMETHASONE
     Indication: Paraneoplastic pemphigus
     Dosage: ONCE DAY FOR TWO DAYS PULSING DOSES
     Route: 065
  9. DEXAMETHASONE [Suspect]
     Active Substance: DEXAMETHASONE
     Indication: Paraneoplastic pemphigus
     Route: 065

REACTIONS (3)
  - Neutropenia [Recovering/Resolving]
  - Pyrexia [Unknown]
  - Febrile neutropenia [Unknown]
